FAERS Safety Report 25181936 (Version 1)
Quarter: 2025Q2

REPORT INFORMATION
  Report Type: Spontaneous
  Country: US (occurrence: US)
  Receive Date: 20250410
  Receipt Date: 20250410
  Transmission Date: 20250716
  Serious: No
  Sender: ABBVIE
  Company Number: US-ABBVIE-6214595

PATIENT
  Age: 69 Year
  Sex: Female

DRUGS (2)
  1. URSODIOL [Suspect]
     Active Substance: URSODIOL
     Indication: Product used for unknown indication
     Route: 048
  2. AZITHROMYCIN [Suspect]
     Active Substance: AZITHROMYCIN
     Indication: Product used for unknown indication
     Route: 048

REACTIONS (5)
  - Allergy to chemicals [Unknown]
  - Gastrointestinal disorder [Unknown]
  - Food allergy [Unknown]
  - Exposure to allergen [Unknown]
  - Lactose intolerance [Unknown]
